FAERS Safety Report 12137122 (Version 5)
Quarter: 2016Q2

REPORT INFORMATION
  Report Type: Spontaneous
  Country: JP (occurrence: JP)
  Receive Date: 20160302
  Receipt Date: 20160519
  Transmission Date: 20160815
  Serious: Yes (Other)
  Sender: FDA-Public Use
  Company Number: PHJP2016JP004112

PATIENT
  Age: 84 Year
  Sex: Male
  Weight: 41 kg

DRUGS (20)
  1. CALONAL [Suspect]
     Active Substance: ACETAMINOPHEN
     Indication: PYREXIA
     Dosage: 600 MG, PRN
     Route: 048
     Dates: start: 20150208, end: 20150208
  2. TAKEPRON [Suspect]
     Active Substance: LANSOPRAZOLE
     Indication: GASTRIC PH DECREASED
     Dosage: 15 MG, QD
     Route: 048
     Dates: start: 20150118, end: 20150211
  3. CALONAL [Suspect]
     Active Substance: ACETAMINOPHEN
     Indication: PYREXIA
     Dosage: 500 G, PRN
     Route: 048
     Dates: start: 20150130
  4. CALONAL [Suspect]
     Active Substance: ACETAMINOPHEN
     Indication: PAIN
  5. SALIVEHT [Concomitant]
     Indication: DRY MOUTH
     Dosage: UNK
     Route: 048
     Dates: start: 20150129
  6. NEW LECICARBON [Concomitant]
     Active Substance: SODIUM BICARBONATE\SODIUM PHOSPHATE, MONOBASIC
     Indication: CONSTIPATION
     Dosage: 1 DF, PRN
     Route: 054
     Dates: start: 20150204, end: 20150204
  7. ENTERONON-R [Concomitant]
     Active Substance: PROBIOTICS NOS
     Indication: DYSBACTERIOSIS
     Dosage: 3 G, TID
     Route: 048
     Dates: start: 20150112, end: 20150124
  8. PICOSULFATE NA [Concomitant]
     Indication: CONSTIPATION
     Dosage: 10 - 15 DRP, UNK
     Route: 048
     Dates: start: 20150115
  9. SORENTMIN//BROTIZOLAM [Concomitant]
     Indication: ANXIETY
     Dosage: 0.25 MG, PRN
     Route: 048
     Dates: start: 20150125, end: 20150209
  10. GASMOTIN [Concomitant]
     Active Substance: MOSAPRIDE CITRATE
     Indication: VOMITING
     Dosage: 1.5 G, TID
     Route: 048
     Dates: start: 20150125, end: 20150211
  11. DIOVAN [Suspect]
     Active Substance: VALSARTAN
     Indication: HYPERTENSION
     Dosage: 80 MG, QD
     Route: 048
     Dates: start: 20150124, end: 20150205
  12. CALONAL [Suspect]
     Active Substance: ACETAMINOPHEN
     Indication: PAIN
     Dosage: 500 G, PRN
     Route: 048
     Dates: start: 20150204
  13. SATOSALBE [Concomitant]
     Active Substance: ZINC OXIDE
     Indication: PROPHYLAXIS
     Dosage: UNK
     Route: 061
     Dates: start: 20150124
  14. BIOFERMIN [Concomitant]
     Active Substance: BACILLUS SUBTILIS\LACTOBACILLUS ACIDOPHILUS\STREPTOCOCCUS FAECAIS
     Indication: DYSBACTERIOSIS
     Dosage: 3 G, TID
     Route: 048
     Dates: start: 20150125, end: 20150211
  15. AMLODIPINE [Suspect]
     Active Substance: AMLODIPINE BESYLATE
     Indication: HYPERTENSION
     Dosage: 5 MG, QD
     Route: 048
     Dates: start: 20150124, end: 20150211
  16. PROPETO [Concomitant]
     Indication: PROPHYLAXIS
     Dosage: UNK
     Route: 061
     Dates: start: 20150202
  17. CALONAL [Suspect]
     Active Substance: ACETAMINOPHEN
     Dosage: 500 G, PRN
     Route: 048
     Dates: start: 20150206, end: 20150206
  18. PASTARON SOFT [Concomitant]
     Indication: DRY SKIN PROPHYLAXIS
     Dosage: UNK
     Route: 061
     Dates: start: 20150112
  19. NEOSTELIN GREEN [Concomitant]
     Indication: ANTIBIOTIC PROPHYLAXIS
     Dosage: UNK
     Route: 049
     Dates: start: 20150110
  20. PRIMPERAN [Concomitant]
     Active Substance: METOCLOPRAMIDE HYDROCHLORIDE
     Indication: VOMITING
     Dosage: 15 MG, TID
     Route: 048
     Dates: start: 20150124, end: 20150128

REACTIONS (10)
  - Skin ulcer [Unknown]
  - Pruritus [Unknown]
  - Toxic epidermal necrolysis [Recovering/Resolving]
  - Skin exfoliation [Unknown]
  - Erythema [Unknown]
  - Delirium [Unknown]
  - Rash generalised [Recovered/Resolved]
  - Blister [Unknown]
  - Skin erosion [Unknown]
  - Skin exfoliation [Unknown]

NARRATIVE: CASE EVENT DATE: 20150202
